FAERS Safety Report 18689355 (Version 1)
Quarter: 2020Q4

REPORT INFORMATION
  Report Type: Spontaneous
  Country: NO (occurrence: NO)
  Receive Date: 20201231
  Receipt Date: 20201231
  Transmission Date: 20210114
  Serious: Yes (Other)
  Sender: FDA-Public Use
  Company Number: NO-TEVA-2020-NO-1863936

PATIENT
  Age: 55 Year
  Sex: Male

DRUGS (4)
  1. VOLTAREN [Concomitant]
     Active Substance: DICLOFENAC SODIUM
     Dosage: DOSED THREE TIMES PER DAY
  2. NEOTIGASON [Suspect]
     Active Substance: ACITRETIN
     Indication: PSORIASIS
     Dosage: INITIALLY 25 MG X 1, BUT IN NOV/2019 INCREASED TO 35 MG X 1, UNIT DOSE: 35 MG
     Route: 048
     Dates: start: 201710
  3. PARACET [Concomitant]
     Active Substance: ACETAMINOPHEN
  4. ENSTILAR [Concomitant]
     Active Substance: BETAMETHASONE DIPROPIONATE\CALCIPOTRIENE HYDRATE
     Indication: PSORIASIS

REACTIONS (2)
  - Cutaneous sarcoidosis [Not Recovered/Not Resolved]
  - Pulmonary sarcoidosis [Not Recovered/Not Resolved]
